FAERS Safety Report 8211264-0 (Version None)
Quarter: 2012Q1

REPORT INFORMATION
  Report Type: 
  Country: None (occurrence: None)
  Receive Date: 20120228
  Receipt Date: 20110830
  Transmission Date: 20120608
  Serious: Yes (Hospitalization, Other)
  Sender: FDA-Public Use
  Company Number: RB-31909-2011

PATIENT
  Sex: Male

DRUGS (4)
  1. BUPRENORPHINE [Suspect]
     Indication: DRUG DEPENDENCE
     Dosage: (20 MG  TRANSPLACENTAL), (20 MG TRANSMAMMARY)
     Route: 064
     Dates: start: 20110601, end: 20110611
  2. BUPRENORPHINE [Suspect]
     Indication: DRUG DEPENDENCE
     Dosage: (20 MG  TRANSPLACENTAL), (20 MG TRANSMAMMARY)
     Route: 064
     Dates: start: 20100101, end: 20110601
  3. SUBOXONE [Suspect]
     Indication: DRUG DEPENDENCE
     Dosage: (20 MG STOP DATE: FIRST TRIMESTER TRANSPLACENTAL), (20 MG TRANSMAMMARY)
     Route: 064
     Dates: start: 20110612, end: 20110701
  4. SUBOXONE [Suspect]
     Indication: DRUG DEPENDENCE
     Dosage: (20 MG STOP DATE: FIRST TRIMESTER TRANSPLACENTAL), (20 MG TRANSMAMMARY)
     Route: 064
     Dates: start: 20100801, end: 20100101

REACTIONS (3)
  - POOR SUCKING REFLEX [None]
  - IRRITABILITY [None]
  - DRUG WITHDRAWAL SYNDROME NEONATAL [None]
